FAERS Safety Report 20080872 (Version 1)
Quarter: 2021Q4

REPORT INFORMATION
  Report Type: Spontaneous
  Country: DE (occurrence: DE)
  Receive Date: 20211117
  Receipt Date: 20211117
  Transmission Date: 20220303
  Serious: Yes (Congenital Anomaly, Other)
  Sender: FDA-Public Use
  Company Number: DE-EMBRYOTOX-202008589

PATIENT
  Age: 1 Day
  Sex: Male
  Weight: 4.1 kg

DRUGS (7)
  1. BUDESONIDE [Suspect]
     Active Substance: BUDESONIDE
     Indication: Asthma
     Dosage: 400 [MICROG/D (200-0-200) ]
     Route: 064
     Dates: start: 20200404, end: 20210106
  2. BUDESONIDE\FORMOTEROL FUMARATE [Suspect]
     Active Substance: BUDESONIDE\FORMOTEROL FUMARATE
     Indication: Asthma
     Dosage: UNK, 640 [MICROG/D (320-0-320) ] / 18 [MICROG/D (9-0-9) ]
     Route: 064
     Dates: start: 20200404, end: 20210106
  3. HYDROMORPHONE [Concomitant]
     Active Substance: HYDROMORPHONE
     Indication: Intervertebral disc protrusion
     Dosage: UNK, 23.8 [MG/D (BIS 2) ]
     Route: 064
     Dates: start: 20200804, end: 20201009
  4. INFLUSPLIT TETRA [Concomitant]
     Active Substance: INFLUENZA VIRUS VACCINE
     Indication: Immunisation
     Dosage: UNK
     Route: 064
     Dates: start: 20210121, end: 20210121
  5. BOOSTRIX [Concomitant]
     Active Substance: TETANUS TOXOID, REDUCED DIPHTHERIA TOXOID AND ACELLULAR PERTUSSIS VACCINE, ADSORBED ANTIGENS
     Indication: Immunisation
     Dosage: UNK
     Route: 064
     Dates: start: 20210121, end: 20210121
  6. PIRITRAMIDE [Concomitant]
     Active Substance: PIRITRAMIDE
     Indication: Intervertebral disc protrusion
     Dosage: UNK, 31 [MG/D ]
     Route: 064
     Dates: start: 20200805, end: 20200824
  7. IBUPROFEN [Concomitant]
     Active Substance: IBUPROFEN
     Indication: Intervertebral disc protrusion
     Dosage: UNK,800 [MG/D ]
     Route: 064
     Dates: start: 20200802, end: 20200803

REACTIONS (3)
  - Congenital megaureter [Unknown]
  - Congenital hydronephrosis [Unknown]
  - Foetal exposure during pregnancy [Recovered/Resolved]

NARRATIVE: CASE EVENT DATE: 20210106
